FAERS Safety Report 15799830 (Version 1)
Quarter: 2019Q1

REPORT INFORMATION
  Report Type: Spontaneous
  Country: GB (occurrence: GB)
  Receive Date: 20190108
  Receipt Date: 20190108
  Transmission Date: 20190417
  Serious: Yes (Death, Other)
  Sender: FDA-Public Use
  Company Number: GB-PFIZER INC-2019009519

PATIENT
  Age: 67 Year
  Sex: Female
  Weight: 115 kg

DRUGS (5)
  1. CHLORPHENAMINE [Concomitant]
     Active Substance: CHLORPHENIRAMINE MALEATE
     Indication: PREMEDICATION
     Dosage: 10 MG, UNK
     Route: 042
  2. RANITIDINE. [Concomitant]
     Active Substance: RANITIDINE
     Indication: PREMEDICATION
     Dosage: 50 MG, UNK
     Route: 042
  3. PACLITAXEL. [Suspect]
     Active Substance: PACLITAXEL
     Indication: OVARIAN CANCER
     Dosage: INTENDED:162MG IN 277ML SODIUM CHLORIDE 0.9%, INSTEAD: APPROXIMATELY 15MG INFUSED
     Route: 042
     Dates: start: 20180801, end: 20180801
  4. DEXAMETHASONE. [Concomitant]
     Active Substance: DEXAMETHASONE
     Indication: PREMEDICATION
     Dosage: 10 MG, UNK
     Route: 042
  5. ONDANSETRON [Concomitant]
     Active Substance: ONDANSETRON
     Indication: PREMEDICATION
     Dosage: 8 MG, UNK
     Route: 042

REACTIONS (2)
  - Anaphylactic reaction [Not Recovered/Not Resolved]
  - Cardiac arrest [Fatal]

NARRATIVE: CASE EVENT DATE: 20180801
